FAERS Safety Report 9239641 (Version 3)
Quarter: 2013Q4

REPORT INFORMATION
  Report Type: Spontaneous
  Country: US (occurrence: US)
  Receive Date: 20130418
  Receipt Date: 20131118
  Transmission Date: 20140711
  Serious: Yes (Hospitalization)
  Sender: FDA-Public Use
  Company Number: US-BAYER-2013-048867

PATIENT
  Age: 35 Year
  Sex: Female
  Weight: 68.03 kg

DRUGS (24)
  1. OCELLA [Suspect]
     Dosage: UNK
     Dates: start: 200401, end: 20060906
  2. CEFUROXIME [Concomitant]
     Indication: COUGH
  3. CEFUROXIME [Concomitant]
     Indication: SINUSITIS
  4. CEFUROXIME [Concomitant]
     Indication: BRONCHITIS
  5. ROBITUSSIN DM [Concomitant]
     Indication: COUGH
  6. ROBITUSSIN DM [Concomitant]
     Indication: BRONCHITIS
  7. ROBITUSSIN DM [Concomitant]
     Indication: SINUSITIS
  8. WELLBUTRIN [Concomitant]
  9. NICOPATCH [Concomitant]
  10. MILK OF MAGNESIA [Concomitant]
     Indication: CONSTIPATION
  11. MILK OF MAGNESIA [Concomitant]
     Indication: FLATULENCE
  12. SIMETHICON [Concomitant]
     Indication: FLATULENCE
  13. SIMETHICON [Concomitant]
     Indication: CONSTIPATION
  14. SYNTHROID [Concomitant]
     Indication: HYPOTHYROIDISM
  15. BACTRIM DS [Concomitant]
     Dosage: [ONE] BID [TIMES] 10 D
     Route: 048
  16. OXYCODONE [Concomitant]
     Indication: PAIN
     Dosage: 15 MG -1 EVERY 4-6 HRS PRN
  17. XANAX [Concomitant]
     Dosage: 1 MG, UNK
     Route: 048
  18. RELPAX [Concomitant]
     Indication: MIGRAINE
     Dosage: 40 MG, UNK
  19. SKELAXIN [Concomitant]
     Indication: MUSCLE SPASMS
     Dosage: 800 MG, 1 QID PRN
  20. CELEBREX [Concomitant]
     Dosage: 200 MG, QD WITH FOOD (15 DAY SAMPLE)
     Route: 048
  21. TOPAMAX [Concomitant]
     Dosage: 25 MG, ONE Q HS [TIMES] 1 WK BID
     Route: 048
  22. LOMOTIL [DIPHENOXYLATE HYDROCHLORIDE] [Concomitant]
     Indication: DIARRHOEA
     Dosage: UNK, PRN
  23. IBUPROFEN [Concomitant]
     Dosage: 800 MG, TID WITH FOOD PRN
  24. NEXIUM [Concomitant]
     Dosage: 40 MG, OM
     Route: 048

REACTIONS (2)
  - Pulmonary embolism [Recovered/Resolved]
  - Injury [Recovered/Resolved]
